FAERS Safety Report 17443868 (Version 3)
Quarter: 2020Q3

REPORT INFORMATION
  Report Type: Spontaneous
  Country: US (occurrence: US)
  Receive Date: 20200221
  Receipt Date: 20200724
  Transmission Date: 20201102
  Serious: Yes (Other)
  Sender: FDA-Public Use
  Company Number: US-ASTRAZENECA-2018SF48013

PATIENT
  Age: 25069 Day
  Sex: Male
  Weight: 96.2 kg

DRUGS (51)
  1. NEXIUM [Suspect]
     Active Substance: ESOMEPRAZOLE MAGNESIUM
     Indication: GASTROOESOPHAGEAL REFLUX DISEASE
     Route: 048
     Dates: start: 1997, end: 2016
  2. NEXIUM [Suspect]
     Active Substance: ESOMEPRAZOLE MAGNESIUM
     Indication: GASTROOESOPHAGEAL REFLUX DISEASE
     Route: 048
     Dates: start: 200309, end: 201303
  3. PRILOSEC [Suspect]
     Active Substance: OMEPRAZOLE MAGNESIUM
     Indication: GASTROOESOPHAGEAL REFLUX DISEASE
     Route: 048
     Dates: start: 199901, end: 200312
  4. PANTOPRAZOLE [Suspect]
     Active Substance: PANTOPRAZOLE
     Indication: GASTROOESOPHAGEAL REFLUX DISEASE
     Dosage: GENERIC
     Route: 065
     Dates: start: 201401, end: 201407
  5. LIPITOR [Concomitant]
     Active Substance: ATORVASTATIN CALCIUM
     Indication: BLOOD CHOLESTEROL
  6. MUPIROCIN. [Concomitant]
     Active Substance: MUPIROCIN
     Dosage: AS NEEDED
     Dates: start: 1960
  7. METOPROLOL. [Concomitant]
     Active Substance: METOPROLOL
     Dosage: AS NEEDED
     Dates: start: 1960
  8. FERRIOUS SULFATE [Concomitant]
     Dosage: AS NEEDED
     Dates: start: 1960
  9. VITAMIN B12 [Concomitant]
     Active Substance: CYANOCOBALAMIN
     Dosage: AS NEEDED
     Dates: start: 1960
  10. NEXIUM [Suspect]
     Active Substance: ESOMEPRAZOLE MAGNESIUM
     Indication: GASTROOESOPHAGEAL REFLUX DISEASE
     Route: 048
     Dates: start: 2002, end: 2016
  11. PRILOSEC [Suspect]
     Active Substance: OMEPRAZOLE MAGNESIUM
     Indication: GASTROOESOPHAGEAL REFLUX DISEASE
     Route: 048
     Dates: start: 1997, end: 2016
  12. PRILOSEC [Suspect]
     Active Substance: OMEPRAZOLE MAGNESIUM
     Indication: GASTROOESOPHAGEAL REFLUX DISEASE
     Dosage: GENERIC/ MEDICAL
     Route: 048
     Dates: start: 20140904
  13. PREVACID [Suspect]
     Active Substance: LANSOPRAZOLE
     Indication: GASTROOESOPHAGEAL REFLUX DISEASE
     Route: 065
     Dates: start: 199712, end: 199808
  14. PREVACID [Suspect]
     Active Substance: LANSOPRAZOLE
     Indication: GASTROOESOPHAGEAL REFLUX DISEASE
     Route: 065
     Dates: start: 199712, end: 199809
  15. METOPROLOL. [Concomitant]
     Active Substance: METOPROLOL
     Indication: HYPERTENSION
     Dates: start: 2015
  16. MAALOX ANTACID [Concomitant]
     Active Substance: ALUMINUM HYDROXIDE\DIMETHICONE\MAGNESIUM HYDROXIDE
     Dosage: AS NEEDED
     Dates: start: 1960
  17. MYLANTA [Concomitant]
     Active Substance: ALUMINUM HYDROXIDE\DIMETHICONE\MAGNESIUM HYDROXIDE
     Dosage: AS NEEDED
     Dates: start: 1960
  18. VESICARE [Concomitant]
     Active Substance: SOLIFENACIN SUCCINATE
     Dosage: AS NEEDED
     Dates: start: 1960
  19. LOVASTATIN. [Concomitant]
     Active Substance: LOVASTATIN
     Dosage: AS NEEDED
     Dates: start: 1960
  20. SPIRONOLACTONE. [Concomitant]
     Active Substance: SPIRONOLACTONE
     Dosage: AS NEEDED
     Dates: start: 1960
  21. INDAPAMIDE. [Concomitant]
     Active Substance: INDAPAMIDE
     Dosage: AS NEEDED
     Dates: start: 1960
  22. POTASSIUM CHLORIDE. [Concomitant]
     Active Substance: POTASSIUM CHLORIDE
     Dosage: AS NEEDED
     Dates: start: 1960
  23. VALSARTAN. [Concomitant]
     Active Substance: VALSARTAN
     Dosage: AS NEEDED
     Dates: start: 1960
  24. VITAMIN C [Concomitant]
     Active Substance: ASCORBIC ACID
     Dosage: AS NEEDED
     Dates: start: 1960
  25. PRILOSEC [Suspect]
     Active Substance: OMEPRAZOLE MAGNESIUM
     Indication: GASTROOESOPHAGEAL REFLUX DISEASE
     Dosage: GENERIC
     Route: 048
  26. RANITIDINE. [Suspect]
     Active Substance: RANITIDINE
     Indication: GASTROOESOPHAGEAL REFLUX DISEASE
     Route: 065
     Dates: start: 201901, end: 201904
  27. PEPCID [Concomitant]
     Active Substance: FAMOTIDINE
     Indication: GASTROOESOPHAGEAL REFLUX DISEASE
     Dates: start: 202002
  28. HYDRALAZINE [Concomitant]
     Active Substance: HYDRALAZINE HYDROCHLORIDE
     Dosage: AS NEEDED
     Dates: start: 1960
  29. CLONIDINE. [Concomitant]
     Active Substance: CLONIDINE
     Dosage: AS NEEDED
     Dates: start: 1960
  30. FAMOTIDINE. [Concomitant]
     Active Substance: FAMOTIDINE
     Dosage: AS NEEDED
     Dates: start: 1960
  31. TRIAMCINOLONE [Concomitant]
     Active Substance: TRIAMCINOLONE
     Dosage: AS NEEDED
     Dates: start: 1960
  32. FLUTICASONE. [Concomitant]
     Active Substance: FLUTICASONE
     Dosage: AS NEEDED
     Dates: start: 1960
  33. NEXIUM [Suspect]
     Active Substance: ESOMEPRAZOLE MAGNESIUM
     Indication: GASTROOESOPHAGEAL REFLUX DISEASE
     Dosage: MED
     Route: 048
     Dates: start: 20070115
  34. DILTIAZEM. [Concomitant]
     Active Substance: DILTIAZEM
     Dosage: AS NEEDED
     Dates: start: 1960
  35. BUSPIRONE [Concomitant]
     Active Substance: BUSPIRONE HYDROCHLORIDE
     Dosage: AS NEEDED
     Dates: start: 1960
  36. CEFDINIR. [Concomitant]
     Active Substance: CEFDINIR
     Dosage: AS NEEDED
     Dates: start: 1960
  37. PRAVASTATIN. [Concomitant]
     Active Substance: PRAVASTATIN
     Dosage: AS NEEDED
     Dates: start: 1960
  38. PRILOSEC [Suspect]
     Active Substance: OMEPRAZOLE MAGNESIUM
     Indication: GASTROOESOPHAGEAL REFLUX DISEASE
     Route: 048
     Dates: start: 201501, end: 201608
  39. TUMS [Concomitant]
     Active Substance: CALCIUM CARBONATE
     Indication: GASTROOESOPHAGEAL REFLUX DISEASE
     Dosage: AS NEEDED
     Dates: start: 1960
  40. AMITRIPTYLINE [Concomitant]
     Active Substance: AMITRIPTYLINE
     Dosage: AS NEEDED
     Dates: start: 1960
  41. FLUOXETINE [Concomitant]
     Active Substance: FLUOXETINE HYDROCHLORIDE
     Dosage: AS NEEDED
     Dates: start: 1960
  42. OXYCODONE [Concomitant]
     Active Substance: OXYCODONE
     Dosage: AS NEEDED
     Dates: start: 1960
  43. ATORVASTATIN [Concomitant]
     Active Substance: ATORVASTATIN
     Dosage: AS NEEDED
     Dates: start: 1960
  44. PRILOSEC [Suspect]
     Active Substance: OMEPRAZOLE MAGNESIUM
     Indication: GASTROOESOPHAGEAL REFLUX DISEASE
     Route: 048
     Dates: start: 201409, end: 201411
  45. PREVACID [Suspect]
     Active Substance: LANSOPRAZOLE
     Indication: GASTROOESOPHAGEAL REFLUX DISEASE
     Route: 065
     Dates: start: 1997, end: 2016
  46. AMITRYPTYLINE [Concomitant]
     Active Substance: AMITRIPTYLINE
     Indication: ANTIDEPRESSANT THERAPY
     Dates: start: 1993
  47. PEPTO?BISMOL [Concomitant]
     Active Substance: BISMUTH SUBSALICYLATE
     Indication: GASTROOESOPHAGEAL REFLUX DISEASE
     Dates: start: 1968
  48. LEVOCETRIZINE [Concomitant]
     Active Substance: LEVOCETIRIZINE
     Dosage: AS NEEDED
     Dates: start: 1960
  49. PROZAC [Concomitant]
     Active Substance: FLUOXETINE HYDROCHLORIDE
     Indication: ANXIETY
     Dates: start: 1993
  50. BUSPIRONE [Concomitant]
     Active Substance: BUSPIRONE HYDROCHLORIDE
     Indication: ANXIETY
     Dates: start: 1993
  51. PEG [Concomitant]
     Active Substance: POLYETHYLENE GLYCOLS
     Dosage: AS NEEDED
     Dates: start: 1960

REACTIONS (4)
  - Renal failure [Unknown]
  - Nephrogenic anaemia [Unknown]
  - Acute kidney injury [Unknown]
  - Chronic kidney disease [Not Recovered/Not Resolved]

NARRATIVE: CASE EVENT DATE: 20150422
